FAERS Safety Report 10408807 (Version 2)
Quarter: 2015Q1

REPORT INFORMATION
  Report Type: Report from Study
  Country: CA (occurrence: CA)
  Receive Date: 20140826
  Receipt Date: 20150128
  Transmission Date: 20150720
  Serious: Yes (Hospitalization, Other)
  Sender: FDA-Public Use
  Company Number: CA-JNJFOC-20140818139

PATIENT
  Age: 78 Year
  Sex: Female
  Weight: 74.98 kg

DRUGS (2)
  1. REMICADE [Suspect]
     Active Substance: INFLIXIMAB
     Indication: RHEUMATOID ARTHRITIS
     Dosage: 3 MG/KG
     Route: 042
     Dates: start: 20140203, end: 20140710
  2. REMICADE [Suspect]
     Active Substance: INFLIXIMAB
     Indication: RHEUMATOID ARTHRITIS
     Route: 042
     Dates: start: 20150107

REACTIONS (3)
  - Gastrointestinal infection [Unknown]
  - Gastrointestinal carcinoma [Unknown]
  - Polyp [Unknown]

NARRATIVE: CASE EVENT DATE: 201408
